FAERS Safety Report 6229992-5 (Version None)
Quarter: 2009Q2

REPORT INFORMATION
  Report Type: 
  Country: None (occurrence: None)
  Receive Date: 20090615
  Receipt Date: 20090602
  Transmission Date: 20091009
  Serious: No
  Sender: FDA-Public Use
  Company Number: US-JNJFOC-20090601461

PATIENT
  Sex: Female
  Weight: 77.57 kg

DRUGS (6)
  1. INVEGA [Suspect]
     Route: 048
  2. INVEGA [Suspect]
     Indication: SCHIZOAFFECTIVE DISORDER
     Route: 048
  3. COGENTIN [Concomitant]
     Indication: SCHIZOAFFECTIVE DISORDER
     Route: 048
  4. DOXYCYCLINE [Concomitant]
     Indication: ACNE
  5. LEVOTHYROXINE [Concomitant]
     Indication: THYROID DISORDER
  6. LORAZEPAM [Concomitant]
     Indication: PROPHYLAXIS

REACTIONS (1)
  - BACK PAIN [None]
